FAERS Safety Report 6964892-4 (Version None)
Quarter: 2010Q3

REPORT INFORMATION
  Report Type: 
  Country: None (occurrence: None)
  Receive Date: 20100903
  Receipt Date: 20100826
  Transmission Date: 20110219
  Serious: Yes (Hospitalization)
  Sender: FDA-Public Use
  Company Number: US-ELI_LILLY_AND_COMPANY-US201008008147

PATIENT
  Age: 65 Year
  Sex: Male

DRUGS (11)
  1. HUMULIN N [Suspect]
  2. BENZONATATE [Concomitant]
     Dosage: 200 MG, UNK
  3. FLOMAX [Concomitant]
     Dosage: 0.4 MG, UNK
  4. ZOLPIDEM [Concomitant]
     Dosage: 10 MG, UNK
  5. GEMFIBROZIL [Concomitant]
     Dosage: 600 MG, UNK
  6. OMEPRAZOLE [Concomitant]
     Dosage: 20 MG, UNK
  7. TOPROL-XL [Concomitant]
     Dosage: 200 MG, UNK
  8. ZETIA [Concomitant]
     Dosage: 10 MG, UNK
  9. RAMIPRIL [Concomitant]
     Dosage: 10 MG, UNK
  10. VYTORIN [Concomitant]
  11. ACTOS [Concomitant]

REACTIONS (1)
  - CARDIAC DISORDER [None]
